FAERS Safety Report 7331716-5 (Version None)
Quarter: 2011Q1

REPORT INFORMATION
  Report Type: 
  Country: None (occurrence: None)
  Receive Date: 20110304
  Receipt Date: 20110221
  Transmission Date: 20110831
  Serious: Yes (Hospitalization, Other)
  Sender: FDA-Public Use
  Company Number: PHFR2010GB01034

PATIENT
  Sex: Male

DRUGS (3)
  1. CLOZARIL [Suspect]
     Dosage: 700 MG, QD
     Route: 048
  2. CLOZARIL [Suspect]
     Dosage: 25 MG, BID
     Route: 048
  3. CLOZARIL [Suspect]
     Indication: SCHIZOPHRENIA
     Dosage: 750 MG, QD
     Route: 048
     Dates: start: 19901128

REACTIONS (7)
  - COLON CANCER [None]
  - MALAISE [None]
  - CONSTIPATION [None]
  - DELUSION [None]
  - GASTROINTESTINAL CARCINOMA [None]
  - ANTIPSYCHOTIC DRUG LEVEL INCREASED [None]
  - VOMITING [None]
